FAERS Safety Report 13578350 (Version 5)
Quarter: 2022Q2

REPORT INFORMATION
  Report Type: Spontaneous
  Country: FR (occurrence: FR)
  Receive Date: 20170524
  Receipt Date: 20220404
  Transmission Date: 20220721
  Serious: Yes (Hospitalization, Disabling, Congenital Anomaly, Other)
  Sender: FDA-Public Use
  Company Number: FR-ABBVIE-17P-056-1986370-00

PATIENT
  Sex: Male
  Weight: 3.37 kg

DRUGS (11)
  1. VALPROATE SODIUM [Suspect]
     Active Substance: VALPROATE SODIUM
     Indication: Maternal exposure timing unspecified
     Route: 064
  2. VALPROATE SODIUM [Suspect]
     Active Substance: VALPROATE SODIUM
     Indication: Maternal exposure timing unspecified
     Route: 064
  3. FOLIC ACID [Suspect]
     Active Substance: FOLIC ACID
     Indication: Maternal exposure timing unspecified
     Route: 064
  4. FERROUS SULFATE\FOLIC ACID\GASTRIC MUCIN [Suspect]
     Active Substance: FERROUS SULFATE\FOLIC ACID\GASTRIC MUCIN
     Indication: Maternal exposure timing unspecified
     Route: 064
  5. VITAMIN K [Suspect]
     Active Substance: PHYTONADIONE
     Indication: Maternal exposure timing unspecified
     Route: 064
  6. PREDNISONE [Suspect]
     Active Substance: PREDNISONE
     Indication: Maternal exposure timing unspecified
     Route: 064
  7. ORTENAL [Suspect]
     Active Substance: AMPHETAMINE SULFATE\PHENOBARBITAL
     Indication: Maternal exposure timing unspecified
     Route: 064
  8. TRIMETHADIONE [Suspect]
     Active Substance: TRIMETHADIONE
     Indication: Maternal exposure timing unspecified
     Route: 064
  9. ZARONTIN [Suspect]
     Active Substance: ETHOSUXIMIDE
     Indication: Maternal exposure timing unspecified
     Route: 064
  10. RIVOTRIL [Suspect]
     Active Substance: CLONAZEPAM
     Indication: Product used for unknown indication
     Route: 064
  11. PHENOBARBITAL [Suspect]
     Active Substance: PHENOBARBITAL
     Indication: Maternal exposure timing unspecified
     Route: 064

REACTIONS (57)
  - Hypotonia neonatal [Unknown]
  - Multiple congenital abnormalities [Unknown]
  - Neck deformity [Unknown]
  - Plagiocephaly [Unknown]
  - Foot deformity [Unknown]
  - Lip disorder [Unknown]
  - Arachnodactyly [Unknown]
  - Ear disorder [Unknown]
  - Hypospadias [Unknown]
  - Hypotonia neonatal [Unknown]
  - Craniosynostosis [Unknown]
  - Dysmorphism [Unknown]
  - Strabismus [Unknown]
  - Impaired reasoning [Unknown]
  - Neurodevelopmental disorder [Unknown]
  - Hypotelorism of orbit [Unknown]
  - Speech disorder developmental [Unknown]
  - Language disorder [Unknown]
  - Disturbance in attention [Unknown]
  - Intellectual disability [Unknown]
  - Developmental delay [Unknown]
  - Hypertonia neonatal [Unknown]
  - Ear infection [Unknown]
  - Dilatation ventricular [Unknown]
  - Myopia [Unknown]
  - Astigmatism [Unknown]
  - Bronchiolitis [Unknown]
  - Gross motor delay [Unknown]
  - Neonatal asphyxia [Unknown]
  - Camptodactyly congenital [Unknown]
  - Craniosynostosis [Unknown]
  - Congenital nipple anomaly [Unknown]
  - Myoclonus [Unknown]
  - Foetal exposure during pregnancy [Unknown]
  - Malpositioned teeth [Unknown]
  - Dysgraphia [Unknown]
  - Cerebral ventricle dilatation [Unknown]
  - Learning disability [Unknown]
  - Cognitive disorder [Unknown]
  - Psychomotor retardation [Unknown]
  - Camptodactyly acquired [Unknown]
  - Nipple disorder [Unknown]
  - Speech disorder developmental [Unknown]
  - Dilatation ventricular [Unknown]
  - Finger deformity [Unknown]
  - Excessive skin [Unknown]
  - Congenital eyelid malformation [Unknown]
  - Low set ears [Unknown]
  - Congenital musculoskeletal disorder of skull [Unknown]
  - Wrist deformity [Unknown]
  - Limb deformity [Unknown]
  - Congenital musculoskeletal disorder of limbs [Unknown]
  - Multiple congenital abnormalities [Unknown]
  - Tachycardia foetal [Unknown]
  - Respiratory distress [Unknown]
  - Meconium aspiration syndrome [Unknown]
  - Foetal distress syndrome [Unknown]
